FAERS Safety Report 20807414 (Version 1)
Quarter: 2022Q2

REPORT INFORMATION
  Report Type: Spontaneous
  Country: US (occurrence: None)
  Receive Date: 20220509
  Receipt Date: 20220509
  Transmission Date: 20220721
  Serious: No
  Sender: FDA-Public Use
  Company Number: None

PATIENT
  Age: 56 Year
  Sex: Male

DRUGS (2)
  1. NIRMATRELVIR\RITONAVIR [Suspect]
     Active Substance: NIRMATRELVIR\RITONAVIR
     Indication: Upper respiratory tract infection
     Dosage: FREQUENCY : TWICE A DAY;. ?DOSE OR AMOUNT: 300/100 MG?
     Route: 048
     Dates: start: 20220322, end: 20220327
  2. NIRMATRELVIR\RITONAVIR [Suspect]
     Active Substance: NIRMATRELVIR\RITONAVIR
     Indication: COVID-19

REACTIONS (3)
  - Diarrhoea [None]
  - Gastric disorder [None]
  - Tenderness [None]

NARRATIVE: CASE EVENT DATE: 20220324
